FAERS Safety Report 4818548-4 (Version None)
Quarter: 2005Q4

REPORT INFORMATION
  Report Type: 
  Country: None (occurrence: None)
  Receive Date: 20051031
  Receipt Date: 20051018
  Transmission Date: 20060501
  Serious: Yes (Hospitalization, Disabling, Other)
  Sender: FDA-Public Use
  Company Number: 2005132600

PATIENT
  Age: 70 Year
  Sex: Male

DRUGS (8)
  1. ZMAX [Suspect]
     Indication: COUGH
     Dosage: 1 IN 1 D
     Dates: start: 20050801, end: 20050801
  2. ZMAX [Suspect]
     Indication: PNEUMONIA
     Dosage: 1 IN 1 D
     Dates: start: 20050801, end: 20050801
  3. ZMAX [Suspect]
     Indication: PYREXIA
     Dosage: 1 IN 1 D
     Dates: start: 20050801, end: 20050801
  4. CEFTRIAXONE [Suspect]
     Indication: ILL-DEFINED DISORDER
  5. DEPAKOTE [Concomitant]
  6. ALL OTHER THERAPEUTIC PRODUCTS (ALL OTHER THERAPEUTIC PRODUCTS) [Concomitant]
  7. DIPYRIDAMOLE [Concomitant]
  8. DICLOFENAC SODIUM [Concomitant]

REACTIONS (10)
  - ASTHENIA [None]
  - CEREBRAL INFARCTION [None]
  - CEREBROVASCULAR ACCIDENT [None]
  - DEHYDRATION [None]
  - DIARRHOEA [None]
  - HYPOTENSION [None]
  - HYPOVOLAEMIC SHOCK [None]
  - PAIN [None]
  - PHARMACEUTICAL PRODUCT COMPLAINT [None]
  - RENAL TUBULAR NECROSIS [None]
